FAERS Safety Report 21606138 (Version 3)
Quarter: 2022Q4

REPORT INFORMATION
  Report Type: Spontaneous
  Country: US (occurrence: US)
  Receive Date: 20221117
  Receipt Date: 20221207
  Transmission Date: 20230113
  Serious: Yes (Hospitalization)
  Sender: FDA-Public Use
  Company Number: US-JNJFOC-20221119744

PATIENT
  Age: 11 Year
  Sex: Female

DRUGS (1)
  1. BENADRYL [Suspect]
     Active Substance: DIPHENHYDRAMINE HYDROCHLORIDE
     Indication: Product used for unknown indication
     Dosage: 100 TABLETS JUST ONE TIME
     Route: 065
     Dates: start: 202210

REACTIONS (2)
  - Overdose [Unknown]
  - Product label issue [Unknown]

NARRATIVE: CASE EVENT DATE: 20221001
